FAERS Safety Report 6839676-8 (Version None)
Quarter: 2010Q3

REPORT INFORMATION
  Report Type: 
  Country: None (occurrence: None)
  Receive Date: 20100708
  Receipt Date: 20100623
  Transmission Date: 20110219
  Serious: Yes (Hospitalization, Other)
  Sender: FDA-Public Use
  Company Number: 8042671

PATIENT
  Sex: Male
  Weight: 74 kg

DRUGS (8)
  1. CERTOLIZUMAB PEGOL (CDP870) [Suspect]
     Indication: CROHN'S DISEASE
     Dosage: (400 MG 1X/2 WEEKS, SUBCUTANEOUS)
     Route: 058
     Dates: start: 20080826, end: 20081117
  2. PREDNISOLONE [Concomitant]
  3. MESALAZINE   LASIX /00032601/    FOLATE [Concomitant]
  4. MESALAZINE   LASIX /00032601/ [Concomitant]
  5. FOLATE [Concomitant]
  6. VITAMIN A [Concomitant]
  7. KELP /01214901/ [Concomitant]
  8. IMODIUM /00384302/ [Concomitant]

REACTIONS (17)
  - BENIGN NEOPLASM OF THYROID GLAND [None]
  - BLOOD PRESSURE DECREASED [None]
  - BLOOD THYROID STIMULATING HORMONE DECREASED [None]
  - BRONCHOALVEOLAR LAVAGE ABNORMAL [None]
  - CANDIDIASIS [None]
  - COLITIS [None]
  - DRUG INEFFECTIVE [None]
  - FAECAL INCONTINENCE [None]
  - GASTRITIS [None]
  - IRON DEFICIENCY ANAEMIA [None]
  - PLATELET COUNT INCREASED [None]
  - RECTAL HAEMORRHAGE [None]
  - SEPSIS [None]
  - ULCER [None]
  - VIRAL INFECTION [None]
  - VISUAL IMPAIRMENT [None]
  - WHITE BLOOD CELL COUNT DECREASED [None]
